FAERS Safety Report 6457461-6 (Version None)
Quarter: 2009Q4

REPORT INFORMATION
  Report Type: 
  Country: None (occurrence: None)
  Receive Date: 20091120
  Receipt Date: 20091116
  Transmission Date: 20100525
  Serious: Yes (Other)
  Sender: FDA-Public Use
  Company Number: SPV1-2009-02292

PATIENT
  Age: 38 Year
  Sex: Female
  Weight: 108 kg

DRUGS (2)
  1. FOSRENOL [Suspect]
     Indication: HYPERPHOSPHATAEMIA
     Dosage: 1000 MG, 3X/DAY:TID, ORAL
     Route: 048
     Dates: start: 20070101, end: 20091101
  2. CONTRACEPTIVES NOS [Concomitant]

REACTIONS (1)
  - DIVERTICULITIS [None]
